FAERS Safety Report 5867885-3 (Version None)
Quarter: 2008Q3

REPORT INFORMATION
  Report Type: 
  Country: None (occurrence: None)
  Receive Date: 20080902
  Receipt Date: 20080825
  Transmission Date: 20090109
  Serious: Yes (Hospitalization, Disabling)
  Sender: FDA-Public Use
  Company Number: JP-PFIZER INC-2008045906

PATIENT
  Sex: Female

DRUGS (2)
  1. LIPITOR [Suspect]
     Indication: LIPIDS ABNORMAL
     Route: 048
     Dates: start: 20061205, end: 20061220
  2. LIPITOR [Suspect]
     Route: 048
     Dates: start: 20071113, end: 20080522

REACTIONS (1)
  - INTERSTITIAL LUNG DISEASE [None]
